FAERS Safety Report 8341010-1 (Version None)
Quarter: 2012Q1

REPORT INFORMATION
  Report Type: 
  Country: None (occurrence: None)
  Receive Date: 20120330
  Receipt Date: 20040420
  Transmission Date: 20120608
  Serious: Yes (Hospitalization)
  Sender: FDA-Public Use
  Company Number: PHHY2004US005184

PATIENT

DRUGS (1)
  1. EXELON [Suspect]

REACTIONS (1)
  - ANGINA PECTORIS [None]
